FAERS Safety Report 4798646-4 (Version None)
Quarter: 2005Q4

REPORT INFORMATION
  Report Type: 
  Country: None (occurrence: None)
  Receive Date: 20051014
  Receipt Date: 20051003
  Transmission Date: 20060501
  Serious: Yes (Hospitalization)
  Sender: FDA-Public Use
  Company Number: US-JNJFOC-20040206355

PATIENT
  Sex: Female

DRUGS (8)
  1. DURAGESIC-100 [Suspect]
     Route: 062
     Dates: start: 20030801
  2. DURAGESIC-100 [Suspect]
     Dosage: FOUR 25 UG/HR PATCHES
     Route: 062
     Dates: start: 20030801
  3. DURAGESIC-100 [Suspect]
     Indication: PAIN
     Route: 062
     Dates: start: 20030801
  4. NEURONTIN [Concomitant]
     Indication: PAIN
     Route: 048
  5. WELLBUTRIN [Concomitant]
     Indication: DRUG USE FOR UNKNOWN INDICATION
  6. ESTRACE [Concomitant]
     Indication: DRUG USE FOR UNKNOWN INDICATION
  7. BENTYL [Concomitant]
     Indication: DRUG USE FOR UNKNOWN INDICATION
  8. EFFEXOR [Concomitant]
     Indication: DRUG USE FOR UNKNOWN INDICATION

REACTIONS (4)
  - NEUROPATHY PERIPHERAL [None]
  - POSTOPERATIVE INFECTION [None]
  - PYREXIA [None]
  - THERAPEUTIC RESPONSE DECREASED [None]
